FAERS Safety Report 26002242 (Version 1)
Quarter: 2025Q4

REPORT INFORMATION
  Report Type: Spontaneous
  Country: AR (occurrence: AR)
  Receive Date: 20251105
  Receipt Date: 20251105
  Transmission Date: 20260117
  Serious: Yes (Death, Other)
  Sender: JOHNSON AND JOHNSON
  Company Number: AR-JNJFOC-20251032970

PATIENT
  Age: 57 Year
  Sex: Male

DRUGS (1)
  1. TECVAYLI [Suspect]
     Active Substance: TECLISTAMAB-CQYV
     Indication: Plasma cell myeloma
     Route: 065
     Dates: start: 20250824, end: 20250929

REACTIONS (6)
  - Death [Fatal]
  - Pneumonia [Not Recovered/Not Resolved]
  - Plasma cell myeloma [Unknown]
  - Hypogammaglobulinaemia [Recovered/Resolved]
  - Drug ineffective [Unknown]
  - Sinusitis [Not Recovered/Not Resolved]

NARRATIVE: CASE EVENT DATE: 20250925
